FAERS Safety Report 9719706 (Version 1)
Quarter: 2013Q4

REPORT INFORMATION
  Report Type: Spontaneous
  Country: US (occurrence: US)
  Receive Date: 20131128
  Receipt Date: 20131128
  Transmission Date: 20140711
  Serious: Yes (Other)
  Sender: FDA-Public Use
  Company Number: US-ASTRAZENECA-2013SE85773

PATIENT
  Age: 69 Year
  Sex: Male

DRUGS (4)
  1. CRESTOR [Suspect]
     Dosage: EITHER 10 OR 20 MG DAILY
     Route: 048
  2. LISINOPRIL [Suspect]
     Indication: HYPERTENSION
     Route: 048
  3. METOPROLOL TARTRATE [Concomitant]
     Indication: HYPERTENSION
  4. AMLODIPINE [Concomitant]
     Indication: HYPERTENSION

REACTIONS (3)
  - Prostate cancer [Unknown]
  - Chronic inflammatory demyelinating polyradiculoneuropathy [Unknown]
  - Neuropathy peripheral [Unknown]
